FAERS Safety Report 5372310-5 (Version None)
Quarter: 2007Q2

REPORT INFORMATION
  Report Type: 
  Country: None (occurrence: None)
  Receive Date: 20070627
  Receipt Date: 20070322
  Transmission Date: 20071010
  Serious: No
  Sender: FDA-Public Use
  Company Number: US-BRISTOL-MYERS SQUIBB COMPANY-13704762

PATIENT
  Age: 49 Year
  Sex: Male
  Weight: 66 kg

DRUGS (4)
  1. BARACLUDE [Suspect]
     Indication: HEPATITIS B
     Route: 048
     Dates: start: 20061101
  2. METHADONE HCL [Concomitant]
  3. FOSAMAX [Concomitant]
  4. LEXAPRO [Concomitant]

REACTIONS (3)
  - DECREASED APPETITE [None]
  - DEPRESSION [None]
  - FATIGUE [None]
